FAERS Safety Report 25169334 (Version 1)
Quarter: 2025Q2

REPORT INFORMATION
  Report Type: Spontaneous
  Country: PT (occurrence: PT)
  Receive Date: 20250407
  Receipt Date: 20250407
  Transmission Date: 20250717
  Serious: Yes (Death)
  Sender: PFIZER
  Company Number: PT-PFIZER INC-202500070777

PATIENT
  Age: 6 Year
  Sex: Male

DRUGS (7)
  1. METHYLPREDNISOLONE [Suspect]
     Active Substance: METHYLPREDNISOLONE
     Indication: New onset refractory status epilepticus
  2. MIDAZOLAM [Suspect]
     Active Substance: MIDAZOLAM
     Indication: New onset refractory status epilepticus
  3. ALFENTANIL [Suspect]
     Active Substance: ALFENTANIL
     Indication: New onset refractory status epilepticus
  4. PROPOFOL [Suspect]
     Active Substance: PROPOFOL
     Indication: New onset refractory status epilepticus
  5. KETAMINE [Suspect]
     Active Substance: KETAMINE
     Indication: New onset refractory status epilepticus
  6. THIOPENTAL [Suspect]
     Active Substance: THIOPENTAL
     Indication: New onset refractory status epilepticus
  7. ANAKINRA [Suspect]
     Active Substance: ANAKINRA
     Indication: New onset refractory status epilepticus

REACTIONS (2)
  - Drug ineffective for unapproved indication [Fatal]
  - Off label use [Unknown]
